FAERS Safety Report 5387851-4 (Version None)
Quarter: 2007Q3

REPORT INFORMATION
  Report Type: 
  Country: None (occurrence: None)
  Receive Date: 20070716
  Receipt Date: 20060725
  Transmission Date: 20080115
  Serious: No
  Sender: FDA-Public Use
  Company Number: A0613282A

PATIENT
  Age: 46 Year
  Sex: Female

DRUGS (2)
  1. NICORETTE [Suspect]
     Dates: start: 20060623, end: 20060629
  2. COMMIT [Suspect]
     Dates: start: 20060627, end: 20060630

REACTIONS (5)
  - CHOKING SENSATION [None]
  - COUGH [None]
  - ORAL PAIN [None]
  - TOOTHACHE [None]
  - WEIGHT INCREASED [None]
